FAERS Safety Report 16296248 (Version 1)
Quarter: 2019Q2

REPORT INFORMATION
  Report Type: Spontaneous
  Country: FR (occurrence: FR)
  Receive Date: 20190510
  Receipt Date: 20190510
  Transmission Date: 20190711
  Serious: Yes (Other)
  Sender: FDA-Public Use
  Company Number: FR-009507513-1905FRA002529

PATIENT
  Age: 70 Year
  Sex: Female
  Weight: 80 kg

DRUGS (10)
  1. NOXAFIL [Concomitant]
     Active Substance: POSACONAZOLE
  2. CYTARABINE. [Suspect]
     Active Substance: CYTARABINE
     Indication: ACUTE MYELOID LEUKAEMIA
     Dosage: 550 MILLIGRAM, Q24H
     Route: 041
     Dates: start: 20180505, end: 20180511
  3. CHIBRO-CADRON [Suspect]
     Active Substance: DEXAMETHASONE\NEOMYCIN SULFATE
     Indication: PRODUCT USED FOR UNKNOWN INDICATION
     Dosage: 3 DOSAGE FORM, QD
     Route: 047
     Dates: start: 20180504, end: 20180513
  4. PRIMPERAN [Suspect]
     Active Substance: METOCLOPRAMIDE HYDROCHLORIDE
     Indication: PROPHYLAXIS OF NAUSEA AND VOMITING
     Dosage: 2 DOSAGE FORM, QD
     Route: 048
     Dates: start: 20180505, end: 20180515
  5. LEVOTHYROX [Concomitant]
     Active Substance: LEVOTHYROXINE
  6. DIFFU-K [Suspect]
     Active Substance: POTASSIUM CHLORIDE
     Indication: PRODUCT USED FOR UNKNOWN INDICATION
     Dosage: TOTAL DAILY DOSE: 2400 MILLIGRAM, QD
     Route: 048
     Dates: start: 20180507, end: 20180512
  7. ULTRAPROCT (DIBUCAINE HYDROCHLORIDE\FLUOCORTOLONE CAPROATE\FLUOCORTOLONE PIVALATE) [Suspect]
     Active Substance: DIBUCAINE HYDROCHLORIDE\FLUOCORTOLONE CAPROATE\FLUOCORTOLONE PIVALATE
     Indication: PRODUCT USED FOR UNKNOWN INDICATION
     Dosage: 3 DOSAGE FORM, QD
     Route: 003
     Dates: start: 20180508, end: 20180518
  8. CEFTRIAXONE SODIUM. [Concomitant]
     Active Substance: CEFTRIAXONE SODIUM
  9. EMEND [Suspect]
     Active Substance: APREPITANT
     Indication: PROPHYLAXIS OF NAUSEA AND VOMITING
     Dosage: 1 DOSAGE FORM, QD
     Route: 048
     Dates: start: 20180505, end: 20180510
  10. MYLOTARG [Suspect]
     Active Substance: GEMTUZUMAB OZOGAMICIN
     Indication: ACUTE MYELOID LEUKAEMIA
     Dosage: 5 MILLIGRAM, Q3D
     Route: 041
     Dates: start: 20180504, end: 20180510

REACTIONS (3)
  - Bone marrow failure [Recovered/Resolved]
  - Sepsis [Recovered/Resolved]
  - Bronchopulmonary aspergillosis [Recovered/Resolved]

NARRATIVE: CASE EVENT DATE: 20180509
